FAERS Safety Report 5192467-9 (Version None)
Quarter: 2006Q4

REPORT INFORMATION
  Report Type: 
  Country: None (occurrence: None)
  Receive Date: 20061220
  Receipt Date: 20061214
  Transmission Date: 20070319
  Serious: Yes (Other)
  Sender: FDA-Public Use
  Company Number: 231930

PATIENT
  Age: 66 Year
  Sex: Female

DRUGS (11)
  1. XOLAIR [Suspect]
     Indication: ASTHMA
     Dosage: 450 MEQ, Q2W, SUBCUTANEOUS
     Route: 058
     Dates: start: 20040513
  2. ADVAIR DISKUS 100/50 [Concomitant]
  3. ALBUTEROL (ALBUTEROL/ALBUTEROL SULFATE) [Concomitant]
  4. ATROVENT [Concomitant]
  5. TIAZAC [Concomitant]
  6. PREMARIN [Concomitant]
  7. ZYRTEC [Concomitant]
  8. THYROID TAB [Concomitant]
  9. ZOCOR [Concomitant]
  10. XANAX [Concomitant]
  11. AVAPRO [Concomitant]

REACTIONS (5)
  - ALLERGIC GRANULOMATOUS ANGIITIS [None]
  - CONDITION AGGRAVATED [None]
  - DRUG INEFFECTIVE [None]
  - MALAISE [None]
  - POST PROCEDURAL COMPLICATION [None]
